FAERS Safety Report 9318874 (Version 1)
Quarter: 2013Q2

REPORT INFORMATION
  Report Type: Spontaneous
  Country: BD (occurrence: None)
  Receive Date: 20130524
  Receipt Date: 20130524
  Transmission Date: 20140414
  Serious: Yes (Death)
  Sender: FDA-Public Use
  Company Number: 2013P1006307

PATIENT
  Age: 8 Year
  Sex: Female

DRUGS (1)
  1. ALBENDAZOLE [Suspect]
     Dates: start: 20130423, end: 20130423

REACTIONS (8)
  - Nausea [None]
  - Dizziness [None]
  - Diarrhoea [None]
  - Discomfort [None]
  - Hyperhidrosis [None]
  - Pallor [None]
  - Cardiac arrest [None]
  - Electrolyte imbalance [None]
